FAERS Safety Report 6759921-7 (Version None)
Quarter: 2010Q2

REPORT INFORMATION
  Report Type: 
  Country: None (occurrence: None)
  Receive Date: 20100608
  Receipt Date: 20100527
  Transmission Date: 20101027
  Serious: Yes (Hospitalization)
  Sender: FDA-Public Use
  Company Number: TR-ELI_LILLY_AND_COMPANY-TR201006000272

PATIENT
  Sex: Female

DRUGS (3)
  1. HUMALOG [Suspect]
     Indication: DIABETES MELLITUS
     Dosage: 16 U, 3/D
     Route: 058
  2. LANTUS [Concomitant]
     Indication: DIABETES MELLITUS
     Dosage: 24 U, EACH EVENING
     Route: 058
  3. DIOVAN HCT [Concomitant]
     Indication: HYPERTENSION
     Dosage: 0.5 D/F(320MG) , DAILY (1/D)
     Route: 048

REACTIONS (6)
  - CONTUSION [None]
  - FATIGUE [None]
  - HYPERGLYCAEMIA [None]
  - HYPOAESTHESIA [None]
  - PAIN IN EXTREMITY [None]
  - PRURITUS [None]
